FAERS Safety Report 5366133-0 (Version None)
Quarter: 2007Q2

REPORT INFORMATION
  Report Type: 
  Country: None (occurrence: None)
  Receive Date: 20070530
  Receipt Date: 20070324
  Transmission Date: 20071010
  Serious: No
  Sender: FDA-Public Use
  Company Number: 2005PV001558

PATIENT
  Age: 42 Year
  Sex: Female
  Weight: 125.6464 kg

DRUGS (15)
  1. BYETTA [Suspect]
     Indication: DIABETES MELLITUS NON-INSULIN-DEPENDENT
     Dosage: 5 MCG;BID;SC   10 MCG;BID;SC   10 MCG;BID;SC   5 MCG;BID;SC
     Route: 058
     Dates: start: 20050801, end: 20050901
  2. BYETTA [Suspect]
     Indication: DIABETES MELLITUS NON-INSULIN-DEPENDENT
     Dosage: 5 MCG;BID;SC   10 MCG;BID;SC   10 MCG;BID;SC   5 MCG;BID;SC
     Route: 058
     Dates: start: 20050814, end: 20050912
  3. BYETTA [Suspect]
     Indication: DIABETES MELLITUS NON-INSULIN-DEPENDENT
     Dosage: 5 MCG;BID;SC   10 MCG;BID;SC   10 MCG;BID;SC   5 MCG;BID;SC
     Route: 058
     Dates: start: 20050901
  4. BYETTA [Suspect]
     Indication: DIABETES MELLITUS NON-INSULIN-DEPENDENT
     Dosage: 5 MCG;BID;SC   10 MCG;BID;SC   10 MCG;BID;SC   5 MCG;BID;SC
     Route: 058
     Dates: start: 20050913
  5. BYETTA [Suspect]
  6. BYETTA [Suspect]
  7. COZAAR [Concomitant]
  8. ACIPHEX [Concomitant]
  9. GLUCOTROL XL [Concomitant]
  10. GLUCOPHAGE [Concomitant]
  11. ALBUTEROL [Concomitant]
  12. ACTOS [Concomitant]
  13. TYLENOL (CAPLET) [Concomitant]
  14. GAVISCON [Concomitant]
  15. METFORMIN HCL [Concomitant]

REACTIONS (9)
  - ABDOMINAL DISTENSION [None]
  - BLOOD GLUCOSE INCREASED [None]
  - BRONCHITIS [None]
  - GASTROOESOPHAGEAL REFLUX DISEASE [None]
  - INJECTION SITE HAEMORRHAGE [None]
  - NAUSEA [None]
  - PYREXIA [None]
  - VOMITING [None]
  - WEIGHT DECREASED [None]
